FAERS Safety Report 5492024-0 (Version None)
Quarter: 2007Q4

REPORT INFORMATION
  Report Type: 
  Country: None (occurrence: None)
  Receive Date: 20071018
  Receipt Date: 20071018
  Transmission Date: 20080405
  Serious: No
  Sender: FDA-Public Use
  Company Number: None

PATIENT
  Age: 84 Year
  Sex: Female

DRUGS (1)
  1. PROTAMINE SULFATE [Suspect]
     Indication: COAGULOPATHY
     Dosage: 350MG
     Dates: start: 20070823

REACTIONS (5)
  - ACTIVATED PARTIAL THROMBOPLASTIN TIME PROLONGED [None]
  - BLOOD FIBRINOGEN DECREASED [None]
  - PLATELET COUNT DECREASED [None]
  - PULMONARY ARTERIAL PRESSURE INCREASED [None]
  - RIGHT VENTRICULAR DYSFUNCTION [None]
